FAERS Safety Report 24370537 (Version 5)
Quarter: 2025Q3

REPORT INFORMATION
  Report Type: Report from Study
  Country: US (occurrence: US)
  Receive Date: 20240927
  Receipt Date: 20250917
  Transmission Date: 20251020
  Serious: Yes (Hospitalization, Other)
  Sender: ACADIA PHARMACEUTICALS
  Company Number: US-ACADIA PHARMACEUTICALS INC.-ACA-2024-PIM-005394

PATIENT
  Age: 71 Year
  Sex: Male

DRUGS (20)
  1. NUPLAZID [Suspect]
     Active Substance: PIMAVANSERIN TARTRATE
     Indication: Parkinson^s disease
     Dosage: 34 MILLIGRAM, QD
     Route: 048
     Dates: start: 20210720
  2. NUPLAZID [Suspect]
     Active Substance: PIMAVANSERIN TARTRATE
     Indication: Hallucination
     Dosage: 34 MILLIGRAM, QD
     Route: 048
  3. ASPIRIN [Concomitant]
     Active Substance: ASPIRIN
  4. CARBIDOPA\LEVODOPA [Concomitant]
     Active Substance: CARBIDOPA\LEVODOPA
  5. DROXIDOPA [Concomitant]
     Active Substance: DROXIDOPA
     Dosage: 300 MILLIGRAM (1 CAP), TID
     Route: 048
  6. DROXIDOPA [Concomitant]
     Active Substance: DROXIDOPA
     Dosage: 100 MILLIGRAM, TID (1 CAP)
     Route: 048
  7. GABAPENTIN [Concomitant]
     Active Substance: GABAPENTIN
  8. IRON [Concomitant]
     Active Substance: IRON
  9. PRAVASTATIN [Concomitant]
     Active Substance: PRAVASTATIN
  10. TRAMADOL HCL [Concomitant]
     Active Substance: TRAMADOL HYDROCHLORIDE
  11. VITAMIN B12 [Concomitant]
     Active Substance: CYANOCOBALAMIN
  12. SINEMET [Concomitant]
     Active Substance: CARBIDOPA\LEVODOPA
     Route: 048
  13. SINEMET [Concomitant]
     Active Substance: CARBIDOPA\LEVODOPA
     Dosage: 1.5 TAB, QID AT 9AM, 1PM, 6PM AND 10PM
     Route: 048
  14. SEROQUEL [Concomitant]
     Active Substance: QUETIAPINE FUMARATE
     Route: 048
  15. SEROQUEL [Concomitant]
     Active Substance: QUETIAPINE FUMARATE
     Dosage: 25 MILLIGRAM, QD
     Route: 048
  16. AMANTADINE [Concomitant]
     Active Substance: AMANTADINE
     Dosage: 1 DOSAGE FORM, TID
     Route: 048
  17. PAROXETINE MESYLATE [Concomitant]
     Active Substance: PAROXETINE MESYLATE
  18. OMEPRAZOLE DELAYED RELEASE [OMEPRAZOLE] [Concomitant]
  19. QUETIAPINE FUMARATE [Concomitant]
     Active Substance: QUETIAPINE FUMARATE
  20. QUETIAPINE FUMARATE [Concomitant]
     Active Substance: QUETIAPINE FUMARATE

REACTIONS (23)
  - Dystonia [Unknown]
  - Loss of consciousness [Unknown]
  - Cerebral small vessel ischaemic disease [Unknown]
  - Femoral neck fracture [Unknown]
  - Fall [Unknown]
  - Hallucination [Recovering/Resolving]
  - Hallucination, visual [Recovering/Resolving]
  - Essential tremor [Unknown]
  - Dysgraphia [Unknown]
  - Lumbar radiculopathy [Unknown]
  - Hypoaesthesia [Unknown]
  - Nightmare [Unknown]
  - Muscle spasms [Unknown]
  - Dizziness [Unknown]
  - Obstructive sleep apnoea syndrome [Unknown]
  - Rapid eye movement sleep behaviour disorder [Unknown]
  - Orthostatic hypotension [Unknown]
  - Restless legs syndrome [Unknown]
  - Disorientation [Unknown]
  - Slow speech [Unknown]
  - Condition aggravated [Not Recovered/Not Resolved]
  - Condition aggravated [Recovered/Resolved]
  - Product use issue [Recovered/Resolved]

NARRATIVE: CASE EVENT DATE: 20220301
